FAERS Safety Report 20870847 (Version 1)
Quarter: 2022Q2

REPORT INFORMATION
  Report Type: Spontaneous
  Country: FR (occurrence: FR)
  Receive Date: 20220525
  Receipt Date: 20220525
  Transmission Date: 20220721
  Serious: Yes (Other)
  Sender: FDA-Public Use
  Company Number: None

PATIENT
  Age: 66 Year
  Sex: Female

DRUGS (2)
  1. DOXYCYCLINE [Suspect]
     Active Substance: DOXYCYCLINE
     Indication: Arthritis infective
     Dosage: UNIT DOSE: 200 MG, FREQUENCY TIME : 1 DAY, DURATION : 29 DAYS
     Route: 048
     Dates: start: 20220317, end: 20220415
  2. BACTRIM [Suspect]
     Active Substance: SULFAMETHOXAZOLE\TRIMETHOPRIM
     Indication: Arthritis infective
     Dosage: 2400 MILLIGRAM DAILY; 800 MG X3/D, DURATION : 4 WEEK
     Route: 048
     Dates: start: 20220317, end: 20220415

REACTIONS (1)
  - Hepatic cytolysis [Unknown]

NARRATIVE: CASE EVENT DATE: 20220415
